FAERS Safety Report 25636847 (Version 1)
Quarter: 2025Q3

REPORT INFORMATION
  Report Type: Spontaneous
  Country: US (occurrence: US)
  Receive Date: 20250804
  Receipt Date: 20250804
  Transmission Date: 20251021
  Serious: No
  Sender: CIPLA
  Company Number: US-CIPLA LTD.-2024US09493

PATIENT

DRUGS (8)
  1. TERBINAFINE [Suspect]
     Active Substance: TERBINAFINE
     Indication: Fungal infection
     Dosage: 250 MILLIGRAM, QD
     Route: 048
     Dates: start: 20240705
  2. CLOPAM [CLONAZEPAM] [Concomitant]
     Indication: Anxiety disorder
     Dosage: 0.5 MILLIGRAM, QD (HALF TABLET FOR DAY)
     Route: 065
     Dates: start: 2014
  3. PROZAC [Concomitant]
     Active Substance: FLUOXETINE HYDROCHLORIDE
     Indication: Anxiety disorder
     Dosage: 40 MILLIGRAM, QD (1 TABLET FOR A DAY)
     Route: 065
     Dates: start: 2014
  4. FINASTERIDE [Concomitant]
     Active Substance: FINASTERIDE
     Indication: Alopecia
     Dosage: 0.5 MILLIGRAM, QD, MORE THAN 10 YEARS AGO (1 TABLET FOR A DAY)
     Route: 065
  5. BIOTIN [Concomitant]
     Active Substance: BIOTIN
     Indication: Supplementation therapy
     Dosage: 10000 MICROGRAM, QD (SOFT GEL)
     Route: 065
     Dates: start: 2020
  6. HERBALS [Concomitant]
     Active Substance: HERBALS
     Indication: Anxiety disorder
     Dosage: 1000 MICROGRAM, QD
     Route: 065
     Dates: start: 2014
  7. HERBALS [Concomitant]
     Active Substance: HERBALS
     Indication: Mental disorder
  8. STELARA [Concomitant]
     Active Substance: USTEKINUMAB
     Indication: Psoriasis
     Route: 065
     Dates: start: 2019

REACTIONS (4)
  - Diarrhoea [Not Recovered/Not Resolved]
  - Abdominal pain [Not Recovered/Not Resolved]
  - Rash [Not Recovered/Not Resolved]
  - Pruritus [Not Recovered/Not Resolved]

NARRATIVE: CASE EVENT DATE: 20240801
